FAERS Safety Report 5130897-1 (Version None)
Quarter: 2006Q4

REPORT INFORMATION
  Report Type: 
  Country: None (occurrence: None)
  Receive Date: 20061013
  Receipt Date: 20060927
  Transmission Date: 20070319
  Serious: Yes (Hospitalization)
  Sender: FDA-Public Use
  Company Number: TRP_0874_2006

PATIENT
  Age: 54 Year
  Sex: Male

DRUGS (7)
  1. RIBASPHERE [Suspect]
     Indication: HEPATITIS C
     Dosage: 1200 MG QDAY PO
     Route: 048
     Dates: start: 20060602
  2. PEGASYS [Suspect]
     Indication: HEPATITIS C
     Dosage: 180 MCG QWK SCS
     Route: 058
     Dates: start: 20060602
  3. LITHIUM CARBONATE [Concomitant]
  4. NEURONTIN [Concomitant]
  5. SEROQUEL [Concomitant]
  6. DIOVAN HCT [Concomitant]
  7. COGENTIN [Concomitant]

REACTIONS (8)
  - ANOREXIA [None]
  - BLOOD URINE PRESENT [None]
  - DYSSTASIA [None]
  - FATIGUE [None]
  - NAUSEA [None]
  - RETCHING [None]
  - VOMITING [None]
  - WEIGHT DECREASED [None]
